FAERS Safety Report 10736668 (Version 2)
Quarter: 2015Q1

REPORT INFORMATION
  Report Type: Report from Study
  Country: US (occurrence: US)
  Receive Date: 20150126
  Receipt Date: 20150212
  Transmission Date: 20150721
  Serious: Yes (Other)
  Sender: FDA-Public Use
  Company Number: US-ABBVIE-15K-163-1335947-00

PATIENT
  Age: 70 Year
  Sex: Male

DRUGS (1)
  1. HUMIRA [Suspect]
     Active Substance: ADALIMUMAB
     Indication: CROHN^S DISEASE
     Route: 065
     Dates: start: 20120717

REACTIONS (11)
  - Neurotrophic keratopathy [Recovering/Resolving]
  - Abdominal pain [Not Recovered/Not Resolved]
  - Lacrimation increased [Recovering/Resolving]
  - Dry eye [Recovering/Resolving]
  - Eye pruritus [Recovering/Resolving]
  - Lacrimation increased [Recovering/Resolving]
  - Blepharitis [Recovering/Resolving]
  - Eye pruritus [Recovering/Resolving]
  - Visual impairment [Recovering/Resolving]
  - Ocular surface disease [Recovering/Resolving]
  - Iron deficiency anaemia [Not Recovered/Not Resolved]

NARRATIVE: CASE EVENT DATE: 201310
